FAERS Safety Report 7498175-3 (Version None)
Quarter: 2011Q2

REPORT INFORMATION
  Report Type: 
  Country: None (occurrence: None)
  Receive Date: 20110524
  Receipt Date: 20110513
  Transmission Date: 20111010
  Serious: No
  Sender: FDA-Public Use
  Company Number: US-BIOGENIDEC-2011BI018510

PATIENT
  Age: 39 Year
  Sex: Female

DRUGS (2)
  1. TYSABRI [Suspect]
     Indication: MULTIPLE SCLEROSIS
     Route: 042
     Dates: start: 20110408
  2. AVONEX [Concomitant]
     Indication: MULTIPLE SCLEROSIS
     Route: 030

REACTIONS (9)
  - PRURITUS [None]
  - TREMOR [None]
  - OROPHARYNGEAL PAIN [None]
  - NAUSEA [None]
  - BACK PAIN [None]
  - INFUSION RELATED REACTION [None]
  - PYREXIA [None]
  - ASTHENIA [None]
  - CHILLS [None]
